FAERS Safety Report 19165494 (Version 2)
Quarter: 2021Q2

REPORT INFORMATION
  Report Type: Report from Study
  Country: IN (occurrence: IN)
  Receive Date: 20210421
  Receipt Date: 20210506
  Transmission Date: 20210717
  Serious: Yes (Hospitalization, Other)
  Sender: FDA-Public Use
  Company Number: IN-MYLANLABS-2021M1023918

PATIENT
  Age: 31 Year
  Sex: Male

DRUGS (4)
  1. LEUCOVORIN                         /00566701/ [Suspect]
     Active Substance: LEUCOVORIN
     Indication: COLON CANCER
     Dosage: 912 MILLIGRAM, Q2W (65.1429 MG (912 MG,1 IN 2 WK))
     Route: 042
     Dates: start: 20210327, end: 20210330
  2. OXALIPLATIN. [Suspect]
     Active Substance: OXALIPLATIN
     Indication: COLON CANCER METASTATIC
     Dosage: 194 MILLIGRAM, Q2W (CYCLE 1:27 MAR 2021; 20:50 TO 22:50)
     Route: 042
     Dates: start: 20210327, end: 20210330
  3. FLUOROURACIL. [Suspect]
     Active Substance: FLUOROURACIL
     Indication: COLON CANCER METASTATIC
     Dosage: UNK, Q2W (CYCLE 1: 912 MG OVER 15MINS AND 5472 MG OVER 46HOURS (1 IN 2 WK))
     Route: 042
     Dates: start: 20210327, end: 20210330
  4. BEVACIZUMAB MYLAN [Suspect]
     Active Substance: BEVACIZUMAB
     Indication: COLON CANCER METASTATIC
     Dosage: 1180 MILLIGRAM, Q2W (CYCLE 1?AT A DOSE OF 10 MG/KG (1180 MG,1 IN 2 WK)
     Route: 042
     Dates: start: 20210327, end: 20210330

REACTIONS (1)
  - Myocardial infarction [Recovered/Resolved]

NARRATIVE: CASE EVENT DATE: 20210329
